FAERS Safety Report 18163178 (Version 1)
Quarter: 2020Q3

REPORT INFORMATION
  Report Type: Spontaneous
  Country: US (occurrence: US)
  Receive Date: 20200818
  Receipt Date: 20200818
  Transmission Date: 20201103
  Serious: No
  Sender: FDA-Public Use
  Company Number: None

PATIENT
  Age: 34 Year
  Sex: Female
  Weight: 143.1 kg

DRUGS (22)
  1. BACTRIM DS [Concomitant]
     Active Substance: SULFAMETHOXAZOLE\TRIMETHOPRIM
  2. TOPIRAMATE. [Concomitant]
     Active Substance: TOPIRAMATE
  3. TEMOZOLOMIDE. [Suspect]
     Active Substance: TEMOZOLOMIDE
     Indication: BRAIN NEOPLASM MALIGNANT
     Dosage: ?          OTHER FREQUENCY:QD FOR 5/28 DAYS;?
     Route: 048
     Dates: start: 20200529
  4. ESGIC [Concomitant]
     Active Substance: ACETAMINOPHEN\BUTALBITAL\CAFFEINE
  5. FERROUS SULFATE. [Concomitant]
     Active Substance: FERROUS SULFATE
  6. LEVETIRACETUM [Concomitant]
     Active Substance: LEVETIRACETAM
  7. ZOFRAN [Concomitant]
     Active Substance: ONDANSETRON HYDROCHLORIDE
  8. TEMOZOLOMIDE. [Suspect]
     Active Substance: TEMOZOLOMIDE
     Indication: BRAIN NEOPLASM MALIGNANT
     Dosage: ?          OTHER FREQUENCY:QD FOR 5/28 DAYS;?
     Route: 048
     Dates: start: 20200529
  9. SYSTANE COMPLETE [Concomitant]
     Active Substance: PROPYLENE GLYCOL
  10. UBRELVY [Concomitant]
     Active Substance: UBROGEPANT
  11. VITAMIN D [Concomitant]
     Active Substance: VITAMIN D NOS
  12. ASPIRIN. [Concomitant]
     Active Substance: ASPIRIN
  13. CLONAZEPAM. [Concomitant]
     Active Substance: CLONAZEPAM
  14. MAGNESIUM [Concomitant]
     Active Substance: MAGNESIUM
  15. MIRALAX [Concomitant]
     Active Substance: POLYETHYLENE GLYCOL 3350
  16. SENNOSIDES. [Concomitant]
     Active Substance: SENNOSIDES
  17. ELETRIPTAN. [Concomitant]
     Active Substance: ELETRIPTAN
  18. PROMETHAZINE [Concomitant]
     Active Substance: PROMETHAZINE HYDROCHLORIDE
  19. NARATRIPTAN [Concomitant]
     Active Substance: NARATRIPTAN HYDROCHLORIDE
  20. VITAMIN B12 [Concomitant]
     Active Substance: CYANOCOBALAMIN
  21. EMGALITY [Concomitant]
     Active Substance: GALCANEZUMAB-GNLM
  22. LORATADINE. [Concomitant]
     Active Substance: LORATADINE

REACTIONS (2)
  - Decreased appetite [None]
  - Dysgeusia [None]

NARRATIVE: CASE EVENT DATE: 20200818
